FAERS Safety Report 5517804-4 (Version None)
Quarter: 2007Q4

REPORT INFORMATION
  Report Type: 
  Country: None (occurrence: None)
  Receive Date: 20071113
  Receipt Date: 20071029
  Transmission Date: 20080405
  Serious: Yes (Death)
  Sender: FDA-Public Use
  Company Number: 2007S1009578

PATIENT
  Age: 51 Year
  Sex: Female
  Weight: 90.7194 kg

DRUGS (8)
  1. FENTANYL TRANSDERMAL SYSTEM [Suspect]
     Indication: CANCER PAIN
     Dosage: 12 UG/HR; EVERY 3 DAYS; TRANSDERMAL
     Route: 062
     Dates: start: 20071004, end: 20071012
  2. MORPHINE SULFATE [Concomitant]
  3. TYLENOL [Concomitant]
  4. DECADRON [Concomitant]
  5. ROXICODONE [Concomitant]
  6. LORAZEPAM INTENSOL [Concomitant]
  7. SCOPOLAMINE [Concomitant]
  8. DUONEB [Concomitant]

REACTIONS (2)
  - DRUG INEFFECTIVE [None]
  - RASH GENERALISED [None]
